FAERS Safety Report 23737860 (Version 3)
Quarter: 2024Q2

REPORT INFORMATION
  Report Type: Spontaneous
  Country: ES (occurrence: ES)
  Receive Date: 20240412
  Receipt Date: 20240501
  Transmission Date: 20240715
  Serious: Yes (Hospitalization, Other)
  Sender: FDA-Public Use
  Company Number: ES-ELI_LILLY_AND_COMPANY-ES202404000598

PATIENT
  Age: 67 Year
  Sex: Male

DRUGS (4)
  1. SELPERCATINIB [Suspect]
     Active Substance: SELPERCATINIB
     Indication: Medullary thyroid cancer
     Dosage: 80 MG, BID
     Route: 065
     Dates: start: 20211015, end: 20220701
  2. ALLOPURINOL [Concomitant]
     Active Substance: ALLOPURINOL
     Indication: Product used for unknown indication
  3. OMEPRAZOLE [Concomitant]
     Active Substance: OMEPRAZOLE
     Indication: Product used for unknown indication
  4. ASPIRIN [Concomitant]
     Active Substance: ASPIRIN
     Indication: Product used for unknown indication

REACTIONS (9)
  - Ischaemia [Recovered/Resolved]
  - Necrosis ischaemic [Unknown]
  - Peripheral ischaemia [Unknown]
  - Cyanosis [Unknown]
  - Skin toxicity [Recovered/Resolved]
  - Ingrowing nail [Unknown]
  - Skin ulcer [Unknown]
  - Peripheral artery stenosis [Unknown]
  - Oedema peripheral [Unknown]

NARRATIVE: CASE EVENT DATE: 20220603
